FAERS Safety Report 25366276 (Version 3)
Quarter: 2025Q2

REPORT INFORMATION
  Report Type: Spontaneous
  Country: US (occurrence: US)
  Receive Date: 20250528
  Receipt Date: 20250604
  Transmission Date: 20250717
  Serious: Yes (Other)
  Sender: Thea Pharma
  Company Number: US-THEA-2025001285

PATIENT
  Age: 86 Year
  Sex: Male

DRUGS (2)
  1. IVIZIA [Suspect]
     Active Substance: POVIDONE
     Indication: Dry eye
     Route: 047
     Dates: start: 20250509, end: 20250509
  2. IVIZIA [Suspect]
     Active Substance: POVIDONE
     Indication: Dry eye
     Route: 047
     Dates: start: 202505

REACTIONS (2)
  - Foreign body in eye [Recovered/Resolved]
  - Eye pain [Not Recovered/Not Resolved]

NARRATIVE: CASE EVENT DATE: 20250501
